FAERS Safety Report 24847697 (Version 1)
Quarter: 2025Q1

REPORT INFORMATION
  Report Type: Spontaneous
  Country: AT (occurrence: AT)
  Receive Date: 20250116
  Receipt Date: 20250116
  Transmission Date: 20250409
  Serious: Yes (Other)
  Sender: VIIV
  Company Number: AT-ViiV Healthcare-AT2025003012

PATIENT

DRUGS (2)
  1. DOVATO [Suspect]
     Active Substance: DOLUTEGRAVIR SODIUM\LAMIVUDINE
     Indication: HIV infection
     Dates: start: 20190709
  2. FOSTEMSAVIR [Suspect]
     Active Substance: FOSTEMSAVIR
     Indication: HIV infection

REACTIONS (4)
  - Acute hepatitis C [Unknown]
  - Syphilis [Unknown]
  - Disease recurrence [Unknown]
  - Viral load increased [Unknown]

NARRATIVE: CASE EVENT DATE: 20190701
